FAERS Safety Report 4297857-4 (Version None)
Quarter: 2004Q1

REPORT INFORMATION
  Report Type: 
  Country: None (occurrence: None)
  Receive Date: 20040126
  Receipt Date: 20031030
  Transmission Date: 20041129
  Serious: No
  Sender: FDA-Public Use
  Company Number: USA031051217

PATIENT
  Age: 6 Year
  Sex: Male

DRUGS (3)
  1. STRATTERA [Suspect]
     Indication: DISTURBANCE IN ATTENTION
     Dosage: 10 MG
     Dates: start: 20031023
  2. RITALIN [Concomitant]
  3. MULTIVITAMIN [Concomitant]

REACTIONS (1)
  - EXCITABILITY [None]
